FAERS Safety Report 7961594-2 (Version None)
Quarter: 2011Q4

REPORT INFORMATION
  Report Type: 
  Country: None (occurrence: None)
  Receive Date: 20111207
  Receipt Date: 20111201
  Transmission Date: 20120403
  Serious: Yes (Hospitalization)
  Sender: FDA-Public Use
  Company Number: IR-NOVOPROD-340758

PATIENT

DRUGS (4)
  1. METFORMIN HCL [Concomitant]
     Dosage: 1000 MG, QD
     Route: 048
     Dates: start: 20080101
  2. LEVOTHYROXINE SODIUM [Concomitant]
     Dosage: UNKNOWN
     Route: 048
  3. NOVOMIX 30 FLEXPEN [Suspect]
     Indication: PRODUCT USED FOR UNKNOWN INDICATION
     Dosage: 36 (UNITS UNSPECIFIED) PRE BREAKFAST+ 24 (UNITS UNSPECIFIED) PRE DINNER
     Route: 058
     Dates: start: 20110501
  4. LOVASTATIN [Concomitant]
     Dosage: 10 MG, QD
     Route: 048

REACTIONS (2)
  - URTICARIA [None]
  - RESPIRATORY DISORDER [None]
